FAERS Safety Report 4578306-5 (Version None)
Quarter: 2005Q1

REPORT INFORMATION
  Report Type: 
  Country: None (occurrence: None)
  Receive Date: 20050209
  Receipt Date: 20050131
  Transmission Date: 20050727
  Serious: Yes (Death, Hospitalization)
  Sender: FDA-Public Use
  Company Number: K200500176

PATIENT
  Age: 65 Year
  Sex: Male
  Weight: 74.8 kg

DRUGS (7)
  1. SEPTRA [Suspect]
     Indication: PROPHYLAXIS
     Dosage: ORAL
     Route: 048
     Dates: end: 20040101
  2. TEMODAR [Suspect]
     Indication: GLIOBLASTOMA MULTIFORME
     Dosage: 140 MG, QD; ORAL
     Route: 048
     Dates: start: 20040906, end: 20041013
  3. RADIATION THERAPY [Concomitant]
  4. DECADRON [Concomitant]
  5. NEXIUM [Concomitant]
  6. SENOKOT (SENNA ALEXANDRINA FRUIT) [Concomitant]
  7. DILANTIN [Suspect]

REACTIONS (3)
  - DISEASE PROGRESSION [None]
  - FEBRILE NEUTROPENIA [None]
  - PANCYTOPENIA [None]
